FAERS Safety Report 16848987 (Version 1)
Quarter: 2019Q3

REPORT INFORMATION
  Report Type: Spontaneous
  Country: TW (occurrence: TW)
  Receive Date: 20190925
  Receipt Date: 20190925
  Transmission Date: 20191005
  Serious: Yes (Death, Other)
  Sender: FDA-Public Use
  Company Number: TW-ROCHE-2417448

PATIENT
  Sex: Female

DRUGS (1)
  1. MABTHERA [Suspect]
     Active Substance: RITUXIMAB
     Indication: ANTIPHOSPHOLIPID SYNDROME
     Route: 042

REACTIONS (3)
  - Off label use [Fatal]
  - Death [Fatal]
  - Electrocardiogram QT prolonged [Unknown]
